FAERS Safety Report 17825989 (Version 3)
Quarter: 2023Q1

REPORT INFORMATION
  Report Type: Spontaneous
  Country: CA (occurrence: CA)
  Receive Date: 20200526
  Receipt Date: 20230216
  Transmission Date: 20230418
  Serious: Yes (Hospitalization, Other)
  Sender: FDA-Public Use
  Company Number: CA-BOEHRINGERINGELHEIM-2020-BI-025651

PATIENT
  Age: 76 Year
  Sex: Male

DRUGS (61)
  1. SPIRIVA [Suspect]
     Active Substance: TIOTROPIUM BROMIDE MONOHYDRATE
     Indication: Rhinorrhoea
  2. SPIRIVA [Suspect]
     Active Substance: TIOTROPIUM BROMIDE MONOHYDRATE
     Dosage: 1 DOSAGE FORM
  3. TAMSULOSIN [Suspect]
     Active Substance: TAMSULOSIN
     Indication: Product used for unknown indication
  4. ADVAIR HFA [Suspect]
     Active Substance: FLUTICASONE PROPIONATE\SALMETEROL XINAFOATE
     Indication: Asthma
     Dosage: 2 EVERY 1 DAYS
  5. ADVAIR HFA [Suspect]
     Active Substance: FLUTICASONE PROPIONATE\SALMETEROL XINAFOATE
     Indication: Rhinorrhoea
  6. APIXABAN [Suspect]
     Active Substance: APIXABAN
     Indication: Asthma
     Dosage: 2 EVERY 1 DAYS
  7. APIXABAN [Suspect]
     Active Substance: APIXABAN
     Indication: Rhinorrhoea
     Dosage: 2 EVERY 1 DAYS
  8. APIXABAN [Suspect]
     Active Substance: APIXABAN
  9. BISOPROLOL [Suspect]
     Active Substance: BISOPROLOL
     Indication: Asthma
  10. BISOPROLOL [Suspect]
     Active Substance: BISOPROLOL
     Indication: Rhinorrhoea
  11. DUTASTERIDE [Suspect]
     Active Substance: DUTASTERIDE
     Indication: Asthma
  12. DUTASTERIDE [Suspect]
     Active Substance: DUTASTERIDE
     Indication: Rhinorrhoea
  13. FUROSEMIDE [Suspect]
     Active Substance: FUROSEMIDE
     Indication: Asthma
  14. FUROSEMIDE [Suspect]
     Active Substance: FUROSEMIDE
     Indication: Rhinorrhoea
  15. MEPOLIZUMAB [Suspect]
     Active Substance: MEPOLIZUMAB
     Indication: Asthma
     Route: 042
  16. MEPOLIZUMAB [Suspect]
     Active Substance: MEPOLIZUMAB
     Indication: Rhinorrhoea
     Route: 042
  17. MOXIFLOXACIN HYDROCHLORIDE [Suspect]
     Active Substance: MOXIFLOXACIN HYDROCHLORIDE
     Indication: Asthma
  18. MOXIFLOXACIN HYDROCHLORIDE [Suspect]
     Active Substance: MOXIFLOXACIN HYDROCHLORIDE
     Indication: Rhinorrhoea
  19. NASONEX [Suspect]
     Active Substance: MOMETASONE FUROATE
     Indication: Asthma
     Dosage: SPRAY, METERED DOSE
  20. NASONEX [Suspect]
     Active Substance: MOMETASONE FUROATE
     Indication: Rhinorrhoea
  21. PREDNISONE [Suspect]
     Active Substance: PREDNISONE
     Indication: Asthma
  22. PREDNISONE [Suspect]
     Active Substance: PREDNISONE
     Indication: Rhinorrhoea
  23. ALBUTEROL [Suspect]
     Active Substance: ALBUTEROL
     Indication: Asthma
  24. ALBUTEROL [Suspect]
     Active Substance: ALBUTEROL
     Indication: Rhinorrhoea
  25. SODIUM BICARBONATE\SODIUM CHLORIDE [Suspect]
     Active Substance: SODIUM BICARBONATE\SODIUM CHLORIDE
     Indication: Asthma
  26. SODIUM BICARBONATE\SODIUM CHLORIDE [Suspect]
     Active Substance: SODIUM BICARBONATE\SODIUM CHLORIDE
     Indication: Rhinorrhoea
  27. BUDESONIDE\FORMOTEROL FUMARATE [Suspect]
     Active Substance: BUDESONIDE\FORMOTEROL FUMARATE
     Indication: Asthma
  28. BUDESONIDE\FORMOTEROL FUMARATE [Suspect]
     Active Substance: BUDESONIDE\FORMOTEROL FUMARATE
     Indication: Rhinorrhoea
  29. PERINDOPRIL [Suspect]
     Active Substance: PERINDOPRIL
     Indication: Asthma
  30. PERINDOPRIL [Suspect]
     Active Substance: PERINDOPRIL
     Indication: Rhinorrhoea
     Route: 065
  31. PANTOPRAZOLE [Suspect]
     Active Substance: PANTOPRAZOLE
     Indication: Asthma
  32. PANTOPRAZOLE [Suspect]
     Active Substance: PANTOPRAZOLE
     Indication: Rhinorrhoea
  33. METFORMIN [Suspect]
     Active Substance: METFORMIN HYDROCHLORIDE
     Indication: Asthma
  34. METFORMIN [Suspect]
     Active Substance: METFORMIN HYDROCHLORIDE
     Indication: Rhinorrhoea
  35. BREO ELLIPTA [Suspect]
     Active Substance: FLUTICASONE FUROATE\VILANTEROL TRIFENATATE
     Indication: Asthma
     Route: 055
  36. BREO ELLIPTA [Suspect]
     Active Substance: FLUTICASONE FUROATE\VILANTEROL TRIFENATATE
     Indication: Rhinorrhoea
  37. AMLODIPINE BESYLATE [Suspect]
     Active Substance: AMLODIPINE BESYLATE
     Indication: Asthma
  38. AMLODIPINE BESYLATE [Suspect]
     Active Substance: AMLODIPINE BESYLATE
     Indication: Rhinorrhoea
  39. IRBESARTAN [Suspect]
     Active Substance: IRBESARTAN
     Indication: Asthma
  40. IRBESARTAN [Suspect]
     Active Substance: IRBESARTAN
     Indication: Rhinorrhoea
  41. AMLODIPINE BESYLATE [Suspect]
     Active Substance: AMLODIPINE BESYLATE
     Indication: Asthma
  42. AMLODIPINE BESYLATE [Suspect]
     Active Substance: AMLODIPINE BESYLATE
     Indication: Rhinorrhoea
  43. INDAPAMIDE [Suspect]
     Active Substance: INDAPAMIDE
     Indication: Asthma
     Route: 065
  44. INDAPAMIDE [Suspect]
     Active Substance: INDAPAMIDE
     Indication: Rhinorrhoea
  45. INDAPAMIDE [Suspect]
     Active Substance: INDAPAMIDE
     Indication: Product used for unknown indication
  46. METOPROLOL [Suspect]
     Active Substance: METOPROLOL
     Indication: Asthma
  47. METOPROLOL [Suspect]
     Active Substance: METOPROLOL
     Indication: Rhinorrhoea
  48. AMLODIPINE [Suspect]
     Active Substance: AMLODIPINE BESYLATE
     Indication: Product used for unknown indication
     Route: 065
  49. AVELOX [Suspect]
     Active Substance: MOXIFLOXACIN HYDROCHLORIDE
     Indication: Product used for unknown indication
     Route: 065
  50. ELIQUIS [Suspect]
     Active Substance: APIXABAN
     Indication: Product used for unknown indication
     Route: 065
  51. SYMBICORT [Suspect]
     Active Substance: BUDESONIDE\FORMOTEROL FUMARATE DIHYDRATE
     Indication: Product used for unknown indication
     Dosage: DOSAGE FORM: POWDER
     Route: 065
  52. VENTOLIN [Suspect]
     Active Substance: ALBUTEROL SULFATE
     Indication: Product used for unknown indication
     Route: 055
  53. METFORMIN HYDROCHLORIDE [Suspect]
     Active Substance: METFORMIN HYDROCHLORIDE
     Indication: Product used for unknown indication
  54. TIOTROPIUM [Suspect]
     Active Substance: TIOTROPIUM
     Indication: Product used for unknown indication
     Dosage: 1 DOSAGE FORM
  55. PANTOPRAZOLE SODIUM [Suspect]
     Active Substance: PANTOPRAZOLE SODIUM
     Indication: Product used for unknown indication
  56. DOXYCYCLINE [Concomitant]
     Active Substance: DOXYCYCLINE
     Indication: Asthma
  57. DOXYCYCLINE [Concomitant]
     Active Substance: DOXYCYCLINE
     Indication: Rhinorrhoea
     Route: 065
  58. AZITHROMYCIN [Concomitant]
     Active Substance: AZITHROMYCIN
     Indication: Asthma
  59. AZITHROMYCIN [Concomitant]
     Active Substance: AZITHROMYCIN
     Indication: Rhinorrhoea
     Route: 065
  60. AMOXICILLIN\CLAVULANATE POTASSIUM [Concomitant]
     Active Substance: AMOXICILLIN\CLAVULANATE POTASSIUM
     Indication: Product used for unknown indication
     Route: 065
  61. AMOXICILLIN\CLAVULANATE POTASSIUM [Concomitant]
     Active Substance: AMOXICILLIN\CLAVULANATE POTASSIUM
     Indication: Product used for unknown indication

REACTIONS (20)
  - Influenza [Unknown]
  - Insomnia [Unknown]
  - Wheezing [Unknown]
  - Atrial fibrillation [Unknown]
  - Chest discomfort [Unknown]
  - Constipation [Unknown]
  - Cough [Unknown]
  - Dyspnoea [Unknown]
  - Dyspnoea exertional [Unknown]
  - Gait disturbance [Unknown]
  - Asthma [Unknown]
  - Loss of personal independence in daily activities [Unknown]
  - Obesity [Unknown]
  - Oropharyngeal pain [Unknown]
  - Rash [Unknown]
  - Rhinorrhoea [Unknown]
  - Sleep disorder due to a general medical condition [Unknown]
  - Tachyarrhythmia [Unknown]
  - Asthma [Unknown]
  - Abdominal pain [Unknown]
